FAERS Safety Report 9405556 (Version 2)
Quarter: 2013Q3

REPORT INFORMATION
  Report Type: Spontaneous
  Country: US (occurrence: US)
  Receive Date: 20130717
  Receipt Date: 20130819
  Transmission Date: 20140515
  Serious: No
  Sender: FDA-Public Use
  Company Number: US-B.I. PHARMACEUTICALS,INC./RIDGEFIELD-2013-BI-20430BP

PATIENT
  Age: 59 Year
  Sex: Female
  Weight: 129 kg

DRUGS (31)
  1. COMBIVENT [Suspect]
     Indication: ASTHMA
     Dosage: STRENGTH: 20 MCG / 100 MCG;
     Route: 055
     Dates: start: 20130703
  2. COMBIVENT [Suspect]
     Indication: ASTHMA
     Dosage: STRENGTH: 18 MCG / 103 MCG;
     Route: 055
     Dates: start: 2001, end: 20130702
  3. SINGULAIR [Concomitant]
     Indication: ASTHMA
     Dosage: 10 MG
     Route: 048
     Dates: start: 1998
  4. CRESTOR [Concomitant]
     Indication: BLOOD CHOLESTEROL INCREASED
     Dosage: 80 MG
     Route: 048
     Dates: start: 2003
  5. TOPROL [Concomitant]
     Indication: HYPERTENSION
     Dosage: 200 MG
     Route: 048
     Dates: start: 2013
  6. ROPINIROLE [Concomitant]
     Indication: PARKINSON^S DISEASE
     Dosage: 1 MG
     Route: 048
     Dates: start: 2013
  7. DUONEB [Concomitant]
     Indication: ASTHMA
     Dosage: 4 PUF
     Route: 055
     Dates: start: 2003
  8. NITROGLYCERIN TABS [Concomitant]
     Indication: ANGINA PECTORIS
     Dates: start: 2008
  9. NIASPAN [Concomitant]
     Indication: BLOOD CHOLESTEROL INCREASED
     Dosage: 2000 MG
     Route: 048
     Dates: start: 2010
  10. HUMALOG HR PEN [Concomitant]
     Indication: DIABETES MELLITUS
     Dosage: FORMULATION: INTRAMUSCULAR STRENGTH: 5 UNITS;
     Route: 030
     Dates: start: 2006
  11. FOSAMAX [Concomitant]
     Indication: OSTEOPOROSIS
     Route: 048
     Dates: start: 2003
  12. LEVBID [Concomitant]
     Indication: CROHN^S DISEASE
     Dosage: 1 MG
     Route: 048
     Dates: start: 2012
  13. NORTRIPTYLINE [Concomitant]
     Indication: ANXIETY
     Dosage: 75 MG
     Route: 048
     Dates: start: 2003
  14. NORVASC [Concomitant]
     Indication: HYPERTENSION
     Dosage: 10 MG
     Route: 048
     Dates: start: 2006
  15. IMDUR [Concomitant]
     Indication: ANGINA PECTORIS
     Dosage: 30 MG
     Route: 048
     Dates: start: 2011
  16. LIALDA [Concomitant]
     Indication: CROHN^S DISEASE
     Dosage: 9.6 G
     Route: 048
     Dates: start: 2009
  17. AMBIEN CR [Concomitant]
     Indication: INSOMNIA
     Dosage: 50 MG
     Route: 048
     Dates: start: 2006
  18. FUROSEMIDE [Concomitant]
     Indication: CARDIAC FAILURE CONGESTIVE
     Dosage: 100 MG
     Route: 048
     Dates: start: 2000
  19. METFORMIN [Concomitant]
     Indication: DIABETES MELLITUS
     Dosage: 500 MG
     Route: 048
     Dates: start: 2011
  20. DIOVAN [Concomitant]
     Indication: HYPERTENSION
     Dosage: 320 MG
     Route: 048
     Dates: start: 2013
  21. MEDROL [Concomitant]
     Indication: ASTHMA
     Dosage: 8 MG
     Route: 048
     Dates: start: 1998
  22. RANEXA [Concomitant]
     Indication: ANGINA PECTORIS
     Dosage: 200 MG
     Route: 048
     Dates: start: 2011
  23. NEXIUM [Concomitant]
     Indication: GASTROOESOPHAGEAL REFLUX DISEASE
     Dosage: 80 MG
     Route: 048
     Dates: start: 2008
  24. QVAR [Concomitant]
     Indication: ASTHMA
     Dosage: 160 MCG
     Route: 055
     Dates: start: 2013
  25. NITROGLYCERIN PATCH [Concomitant]
     Indication: ANGINA PECTORIS
     Dosage: 0.4 MG
     Route: 061
     Dates: start: 2008
  26. SINEMET [Concomitant]
     Indication: PARKINSON^S DISEASE
     Dosage: STRENGTH: 25 MG / 250 MG; DAILY DOSE: 100 MG / 1000 MG
     Route: 048
     Dates: start: 1996
  27. RELPAX [Concomitant]
     Indication: CLUSTER HEADACHE
     Route: 048
     Dates: start: 2007
  28. ADVAIR [Concomitant]
     Indication: ASTHMA
     Dosage: STRENGTH: 500 MCG / 50 MCG; DAILY DOSE: 1000 MCG / 100 MCG
     Route: 055
     Dates: start: 1998
  29. ZETIA [Concomitant]
     Indication: BLOOD CHOLESTEROL INCREASED
     Dosage: 10 MG
     Route: 048
     Dates: start: 2011
  30. ACCUPRIL [Concomitant]
     Indication: HYPERTENSION
     Dosage: 40 MG
     Route: 048
     Dates: start: 2003
  31. PLAVIX [Concomitant]
     Indication: THROMBOSIS
     Dosage: 75 MG
     Route: 048
     Dates: start: 2006

REACTIONS (6)
  - Dyspnoea [Not Recovered/Not Resolved]
  - Overdose [Not Recovered/Not Resolved]
  - Off label use [Not Recovered/Not Resolved]
  - Off label use [Recovered/Resolved]
  - Overdose [Recovered/Resolved]
  - Product quality issue [Not Recovered/Not Resolved]
